FAERS Safety Report 23207152 (Version 2)
Quarter: 2024Q1

REPORT INFORMATION
  Report Type: Spontaneous
  Country: US (occurrence: US)
  Receive Date: 20231120
  Receipt Date: 20240124
  Transmission Date: 20240410
  Serious: Yes (Hospitalization, Other)
  Sender: FDA-Public Use
  Company Number: US-002147023-NVSC2023US238644

PATIENT

DRUGS (1)
  1. RUXOLITINIB [Suspect]
     Active Substance: RUXOLITINIB
     Indication: Polycythaemia vera
     Dosage: UNK, LAST 7 YEARS
     Route: 065

REACTIONS (4)
  - Epstein-Barr virus infection reactivation [Recovering/Resolving]
  - Gastritis viral [Recovering/Resolving]
  - Epstein-Barr virus associated lymphoma [Recovering/Resolving]
  - Immunosuppression [Recovering/Resolving]
